FAERS Safety Report 9111349 (Version 2)
Quarter: 2014Q1

REPORT INFORMATION
  Report Type: Spontaneous
  Country: US (occurrence: US)
  Receive Date: 20130219
  Receipt Date: 20140213
  Transmission Date: 20141002
  Serious: No
  Sender: FDA-Public Use
  Company Number: US-BRISTOL-MYERS SQUIBB COMPANY-17222357

PATIENT
  Age: 45 Year
  Sex: Female
  Weight: 66.66 kg

DRUGS (2)
  1. ORENCIA [Suspect]
     Dosage: LAST INF ON 05DEC2012,06FEB13
     Route: 042
  2. METHOTREXATE [Suspect]

REACTIONS (4)
  - Dysphonia [Unknown]
  - Therapeutic response delayed [Unknown]
  - Menstrual disorder [Unknown]
  - Alopecia [Unknown]
